FAERS Safety Report 25870081 (Version 1)
Quarter: 2025Q4

REPORT INFORMATION
  Report Type: Spontaneous
  Country: JP (occurrence: JP)
  Receive Date: 20251001
  Receipt Date: 20251001
  Transmission Date: 20260118
  Serious: Yes (Other)
  Sender: ORGANON
  Company Number: JP-MEIJISEIKA-202505573_P_1

PATIENT
  Age: 72 Year
  Sex: Female

DRUGS (14)
  1. REFLEX [Suspect]
     Active Substance: MIRTAZAPINE
     Dosage: UNK
  2. REFLEX [Suspect]
     Active Substance: MIRTAZAPINE
     Dosage: UNK
  3. SERTRALINE HYDROCHLORIDE [Concomitant]
     Active Substance: SERTRALINE HYDROCHLORIDE
     Dosage: 50 MILLIGRAM
  4. SERTRALINE HYDROCHLORIDE [Concomitant]
     Active Substance: SERTRALINE HYDROCHLORIDE
     Dosage: 100 MILLIGRAM
  5. ARICEPT [Concomitant]
     Active Substance: DONEPEZIL HYDROCHLORIDE
     Dosage: 10 MILLIGRAM
  6. ARICEPT [Concomitant]
     Active Substance: DONEPEZIL HYDROCHLORIDE
     Dosage: 5 MILLIGRAM
  7. SEROQUEL [Concomitant]
     Active Substance: QUETIAPINE FUMARATE
     Dosage: 25 MILLIGRAM
  8. VALPROATE SODIUM [Concomitant]
     Active Substance: VALPROATE SODIUM
     Dosage: 200 MILLIGRAM
  9. LUNESTA [Concomitant]
     Active Substance: ESZOPICLONE
     Dosage: 2 MILLIGRAM
  10. LUNESTA [Concomitant]
     Active Substance: ESZOPICLONE
     Dosage: UNK
  11. BELSOMRA [Concomitant]
     Active Substance: SUVOREXANT
     Dosage: 15 MILLIGRAM
  12. CYMBALTA [Concomitant]
     Active Substance: DULOXETINE HYDROCHLORIDE
     Dosage: 20 MILLIGRAM
     Route: 065
  13. CYMBALTA [Concomitant]
     Active Substance: DULOXETINE HYDROCHLORIDE
     Dosage: 60 MILLIGRAM
     Route: 065
  14. DAYVIGO [Concomitant]
     Active Substance: LEMBOREXANT
     Dosage: 2.5 MILLIGRAM
     Route: 065

REACTIONS (1)
  - Ageusia [Unknown]
